FAERS Safety Report 4401257-3 (Version None)
Quarter: 2004Q3

REPORT INFORMATION
  Report Type: 
  Country: None (occurrence: None)
  Receive Date: 20040907
  Receipt Date: 20040123
  Transmission Date: 20050211
  Serious: No
  Sender: FDA-Public Use
  Company Number: US-BRISTOL-MYERS SQUIBB COMPANY-12486213

PATIENT
  Age: 61 Year
  Sex: Female
  Weight: 159 kg

DRUGS (20)
  1. COUMADIN [Suspect]
     Indication: HYPERCOAGULATION
     Dosage: ON VARYING DOSES, CURRENTLY ON 6 MG DAILY
     Route: 048
     Dates: start: 19980325
  2. LIBRIUM [Concomitant]
  3. NITROGLYCERIN [Concomitant]
  4. AVAPRO [Concomitant]
  5. TOPROL-XL [Concomitant]
  6. SYNTHROID [Concomitant]
  7. ACTOS [Concomitant]
  8. PERI-COLACE [Concomitant]
  9. COLACE [Concomitant]
  10. LACTULOSE [Concomitant]
     Dosage: 2 TABLESPOONS AT NIGHT
  11. ALLOPURINOL [Concomitant]
  12. SINGULAIR [Concomitant]
  13. GLYBURIDE [Concomitant]
  14. GLUCOSAMINE [Concomitant]
  15. VITAMIN B AND C [Concomitant]
  16. PREVACID [Concomitant]
  17. TYLOX [Concomitant]
     Dosage: 500/50 MG AS NEEDED
  18. TYLENOL [Concomitant]
  19. ADVAIR DISKUS 100/50 [Concomitant]
     Dosage: 250/50 MG
  20. ALUPENT INHALER [Concomitant]
     Indication: BRONCHITIS
     Route: 055

REACTIONS (2)
  - BLOOD GLUCOSE INCREASED [None]
  - INTERNATIONAL NORMALISED RATIO ABNORMAL [None]
